FAERS Safety Report 6844542-8 (Version None)
Quarter: 2010Q3

REPORT INFORMATION
  Report Type: 
  Country: None (occurrence: None)
  Receive Date: 20100715
  Receipt Date: 20100618
  Transmission Date: 20110219
  Serious: Yes (Hospitalization)
  Sender: FDA-Public Use
  Company Number: PHHO2010US09408

PATIENT
  Sex: Male
  Weight: 76.2 kg

DRUGS (4)
  1. AFINITOR [Suspect]
     Indication: NEOPLASM
     Dosage: 5 MG, BIW
     Route: 048
     Dates: start: 20100504
  2. OXALIPLATIN COMP-OXA+ [Suspect]
     Indication: NEOPLASM
     Dosage: 75MG/M2
     Route: 042
     Dates: start: 20100615
  3. AVASTIN [Suspect]
     Indication: NEOPLASM
     Dosage: 7.5 MG/KG
     Route: 042
     Dates: start: 20100615
  4. CAPECITABINE COMP-CAP+TAB [Suspect]
     Indication: NEOPLASM
     Dosage: 4.35 MG/M2
     Route: 048

REACTIONS (6)
  - CHILLS [None]
  - DEPRESSED LEVEL OF CONSCIOUSNESS [None]
  - HYPOXIA [None]
  - NAUSEA [None]
  - PYREXIA [None]
  - SOMNOLENCE [None]
